FAERS Safety Report 20221750 (Version 1)
Quarter: 2021Q4

REPORT INFORMATION
  Report Type: Spontaneous
  Country: FR (occurrence: FR)
  Receive Date: 20211223
  Receipt Date: 20211223
  Transmission Date: 20220303
  Serious: Yes (Other)
  Sender: FDA-Public Use
  Company Number: None

PATIENT
  Age: 71 Year
  Sex: Male

DRUGS (1)
  1. TEGRETOL [Suspect]
     Active Substance: CARBAMAZEPINE
     Indication: Incorrect dose administered
     Dosage: 2 DOSAGE FORM, Q24H (2CP PAR JOUR)
     Route: 048
     Dates: start: 20211025

REACTIONS (5)
  - Dyspnoea exertional [Unknown]
  - Rhabdomyolysis [Unknown]
  - Muscle spasms [Unknown]
  - Anaemia [Unknown]
  - Incorrect dose administered [Recovered/Resolved]

NARRATIVE: CASE EVENT DATE: 20211025
